FAERS Safety Report 20728992 (Version 1)
Quarter: 2022Q2

REPORT INFORMATION
  Report Type: Spontaneous
  Country: CA (occurrence: US)
  Receive Date: 20220420
  Receipt Date: 20220420
  Transmission Date: 20220720
  Serious: No
  Sender: FDA-Public Use
  Company Number: CA-009507513-2204USA002215

PATIENT
  Sex: Male
  Weight: 58.957 kg

DRUGS (4)
  1. JANUMET XR [Suspect]
     Active Substance: METFORMIN HYDROCHLORIDE\SITAGLIPTIN PHOSPHATE
     Indication: Diabetes mellitus
     Dosage: 100/1000 MILLIGRAM, ONE TABLET WITH DINNER (PER CLARIFICATION)
     Route: 048
     Dates: start: 2016
  2. FARXIGA [Suspect]
     Active Substance: DAPAGLIFLOZIN PROPANEDIOL
     Dosage: 10 MILLIGRAM, ONCE DAILY
     Route: 065
  3. ROSUVASTATIN CALCIUM [Concomitant]
     Active Substance: ROSUVASTATIN CALCIUM
     Dosage: 5 MILLIGRAM, ONCE DAILY
  4. GLIPIZIDE [Concomitant]
     Active Substance: GLIPIZIDE
     Dosage: 60 MILLIGRAM, ONCE DAILY, EXTENDED RELEASE

REACTIONS (3)
  - Blood glucose fluctuation [Not Recovered/Not Resolved]
  - Glycosylated haemoglobin abnormal [Unknown]
  - Weight decreased [Unknown]

NARRATIVE: CASE EVENT DATE: 20160101
